FAERS Safety Report 14771099 (Version 1)
Quarter: 2018Q2

REPORT INFORMATION
  Report Type: Spontaneous
  Country: US (occurrence: US)
  Receive Date: 20180417
  Receipt Date: 20180417
  Transmission Date: 20180711
  Serious: No
  Sender: FDA-Public Use
  Company Number: US-ALLERGAN-1804264US

PATIENT
  Sex: Female
  Weight: 56.69 kg

DRUGS (1)
  1. LATISSE [Suspect]
     Active Substance: BIMATOPROST
     Indication: GROWTH OF EYELASHES
     Dosage: UNK, QHS
     Route: 061
     Dates: start: 2017

REACTIONS (3)
  - Dry eye [Recovered/Resolved]
  - Foreign body sensation in eyes [Recovered/Resolved]
  - Ocular hyperaemia [Recovered/Resolved]

NARRATIVE: CASE EVENT DATE: 2017
